FAERS Safety Report 4358060-2 (Version None)
Quarter: 2004Q2

REPORT INFORMATION
  Report Type: 
  Country: None (occurrence: None)
  Receive Date: 20040513
  Receipt Date: 20040505
  Transmission Date: 20050107
  Serious: Yes (Other)
  Sender: FDA-Public Use
  Company Number: 2004005834

PATIENT
  Sex: Female

DRUGS (3)
  1. BEN-GAY ULTRA (CAMPHOR, MENTHOL, METHYL SALICYLATE) [Suspect]
     Dosage: UNSPECIFIED AMOUNT ONCE, TOPICAL
     Route: 061
     Dates: start: 20040105, end: 20040105
  2. LANSOPRAZOLE [Concomitant]
  3. CONJUGATED ESTROGENS [Concomitant]

REACTIONS (7)
  - BLISTER [None]
  - GENITAL PRURITUS FEMALE [None]
  - PAIN [None]
  - PHARMACEUTICAL PRODUCT COMPLAINT [None]
  - PRURITUS [None]
  - SKIN BURNING SENSATION [None]
  - URTICARIA [None]
